FAERS Safety Report 12564038 (Version 1)
Quarter: 2016Q3

REPORT INFORMATION
  Report Type: Spontaneous
  Country: US (occurrence: None)
  Receive Date: 20160715
  Receipt Date: 20160715
  Transmission Date: 20161109
  Serious: Yes (Death, Life-Threatening, Hospitalization)
  Sender: FDA-Public Use
  Company Number: None

PATIENT
  Age: 80 Year
  Sex: Female

DRUGS (1)
  1. ALLOPURINOL, 300MG [Suspect]
     Active Substance: ALLOPURINOL
     Indication: GOUT
     Route: 048
     Dates: start: 20160503, end: 20160523

REACTIONS (10)
  - Conjunctivitis [None]
  - Liver injury [None]
  - Laryngitis [None]
  - Drug reaction with eosinophilia and systemic symptoms [None]
  - Renal tubular necrosis [None]
  - Acute kidney injury [None]
  - Respiratory failure [None]
  - Mouth ulceration [None]
  - Stevens-Johnson syndrome [None]
  - Uraemic encephalopathy [None]

NARRATIVE: CASE EVENT DATE: 20160517
